FAERS Safety Report 4400804-5 (Version None)
Quarter: 2004Q3

REPORT INFORMATION
  Report Type: 
  Country: None (occurrence: None)
  Receive Date: 20040907
  Receipt Date: 20030616
  Transmission Date: 20050211
  Serious: No
  Sender: FDA-Public Use
  Company Number: US-BRISTOL-MYERS SQUIBB COMPANY-12302469

PATIENT
  Sex: Female

DRUGS (12)
  1. COUMADIN [Suspect]
     Route: 048
  2. LOVENOX [Concomitant]
  3. ATROVENT [Concomitant]
  4. PEPCID [Concomitant]
  5. REMERON [Concomitant]
  6. VASOTEC [Concomitant]
  7. LIPRAM-CR20 [Concomitant]
  8. LASIX [Concomitant]
  9. TYLENOL [Concomitant]
  10. ROBITUSSIN [Concomitant]
  11. MAALOX [Concomitant]
  12. MILK OF MAGNESIA TAB [Concomitant]

REACTIONS (1)
  - INTERNATIONAL NORMALISED RATIO DECREASED [None]
